FAERS Safety Report 8335765-X (Version None)
Quarter: 2012Q2

REPORT INFORMATION
  Report Type: 
  Country: None (occurrence: None)
  Receive Date: 20120504
  Receipt Date: 20120430
  Transmission Date: 20120825
  Serious: No
  Sender: FDA-Public Use
  Company Number: US-BIOGENIDEC-2012BI015219

PATIENT
  Age: 44 Year
  Sex: Female

DRUGS (1)
  1. TYSABRI [Suspect]
     Indication: MULTIPLE SCLEROSIS
     Route: 042
     Dates: start: 20120222

REACTIONS (8)
  - LIGAMENT RUPTURE [None]
  - TOOTHACHE [None]
  - BRONCHITIS [None]
  - DYSPHAGIA [None]
  - UPPER RESPIRATORY TRACT INFECTION [None]
  - ANKLE FRACTURE [None]
  - TOOTH INFECTION [None]
  - OROPHARYNGEAL PAIN [None]
